FAERS Safety Report 6465858-3 (Version None)
Quarter: 2009Q4

REPORT INFORMATION
  Report Type: 
  Country: None (occurrence: None)
  Receive Date: 20091127
  Receipt Date: 20091120
  Transmission Date: 20100525
  Serious: Yes (Other)
  Sender: FDA-Public Use
  Company Number: JHP200900400

PATIENT

DRUGS (1)
  1. DANTRIUM [Suspect]
     Indication: HYPERTHERMIA MALIGNANT
     Dosage: INTRAVENOUS
     Route: 042

REACTIONS (1)
  - SUPERIOR VENA CAVAL OCCLUSION [None]
